FAERS Safety Report 8876731 (Version 1)
Quarter: 2012Q4

REPORT INFORMATION
  Report Type: 
  Country: CN (occurrence: CN)
  Receive Date: 20121029
  Receipt Date: 20121029
  Transmission Date: 20130627
  Serious: Yes (Other)
  Sender: FDA-Public Use
  Company Number: CN-JNJFOC-20121011386

PATIENT
  Age: 45 Year
  Sex: Female

DRUGS (1)
  1. DUROGESIC [Suspect]
     Indication: CANCER PAIN
     Dosage: 8.4mg as 33.6mg
     Route: 062
     Dates: start: 20121016, end: 20121017

REACTIONS (3)
  - Coma [Not Recovered/Not Resolved]
  - Drug administered at inappropriate site [Unknown]
  - Inappropriate schedule of drug administration [Unknown]
